FAERS Safety Report 8925239 (Version 1)
Quarter: 2012Q4

REPORT INFORMATION
  Report Type: 
  Country: CN (occurrence: CN)
  Receive Date: 20121126
  Receipt Date: 20121126
  Transmission Date: 20130627
  Serious: Yes (Hospitalization)
  Sender: FDA-Public Use
  Company Number: CN-ASTRAZENECA-2012SE87666

PATIENT
  Age: 8 Year
  Sex: Male

DRUGS (2)
  1. SYMBICORT TURBUHALER [Suspect]
     Indication: ASTHMA
     Dosage: 80 P 1 SPRAY QD
     Route: 055
     Dates: start: 201012, end: 20120810
  2. PULMICORT TURBUHALER [Suspect]
     Indication: ASTHMA
     Route: 055
     Dates: start: 201012

REACTIONS (3)
  - Asthma [Unknown]
  - Drug dose omission [Unknown]
  - Drug ineffective [Unknown]
